FAERS Safety Report 9289304 (Version 1)
Quarter: 2013Q2

REPORT INFORMATION
  Report Type: Spontaneous
  Country: RU (occurrence: None)
  Receive Date: 20130510
  Receipt Date: 20130510
  Transmission Date: 20140414
  Serious: No
  Sender: FDA-Public Use
  Company Number: AUR-APL-2013-03905

PATIENT
  Sex: Male
  Weight: 3 kg

DRUGS (4)
  1. LAMIVUDINE [Suspect]
     Indication: ANTIRETROVIRAL THERAPY
     Dosage: TRANSPLACENTAL
     Route: 064
     Dates: start: 20120312
  2. PREZISTA [Suspect]
     Indication: ANTIRETROVIRAL THERAPY
     Dosage: TRANSPLACENTAL
     Route: 064
     Dates: start: 20120406
  3. FORTOVASE [Suspect]
     Indication: ANTIRETROVIRAL THERAPY
     Dosage: TRANSPLACENTAL
     Route: 064
     Dates: start: 20120312, end: 20120405
  4. NORVIR (RITONAVIR) [Suspect]
     Indication: ANTIRETROVIRAL THERAPY
     Route: 064
     Dates: start: 20120312

REACTIONS (4)
  - Neonatal hypoxia [None]
  - Colitis ischaemic [None]
  - Jaundice neonatal [None]
  - Maternal drugs affecting foetus [None]
